FAERS Safety Report 8529946-X (Version None)
Quarter: 2012Q3

REPORT INFORMATION
  Report Type: 
  Country: None (occurrence: None)
  Receive Date: 20120723
  Receipt Date: 20120711
  Transmission Date: 20120928
  Serious: Yes (Hospitalization, Other)
  Sender: FDA-Public Use
  Company Number: AT-BRISTOL-MYERS SQUIBB COMPANY-16735326

PATIENT
  Age: 62 Year
  Sex: Male
  Weight: 85 kg

DRUGS (2)
  1. SPRYCEL [Suspect]
     Indication: CHRONIC MYELOID LEUKAEMIA
     Dosage: 70MG 1-0-1  RED TO 100 MG 1-0-0  50MG 1-0-0 INTER,  RESTA APR08 WITH DOSAGE 50MG 1/2-0-1/2
     Dates: start: 20070501
  2. TASIGNA [Suspect]
     Indication: CHRONIC MYELOID LEUKAEMIA

REACTIONS (8)
  - BRONCHITIS [None]
  - DYSPNOEA [None]
  - COUGH [None]
  - LUNG DISORDER [None]
  - FOLLICULITIS [None]
  - FATIGUE [None]
  - PNEUMONIA [None]
  - RASH [None]
